FAERS Safety Report 8258435 (Version 4)
Quarter: 2014Q2

REPORT INFORMATION
  Report Type: Spontaneous
  Country: US (occurrence: US)
  Receive Date: 20111122
  Receipt Date: 20140528
  Transmission Date: 20141212
  Serious: Yes (Life-Threatening, Congenital Anomaly, Other)
  Sender: FDA-Public Use
  Company Number: US-PFIZER INC-2011282006

PATIENT
  Sex: Male

DRUGS (10)
  1. ZOLOFT [Suspect]
     Indication: DEPRESSION
     Dosage: UNK
     Route: 064
     Dates: start: 2005
  2. ZOLOFT [Suspect]
     Dosage: 10 MG, 1X/DAY
     Route: 064
     Dates: start: 20070404
  3. ZOLOFT [Suspect]
     Dosage: 50 MG, AS NEEDED
     Route: 064
     Dates: start: 20080524
  4. ZOLOFT [Suspect]
     Dosage: 100 MG, 1X/DAY
     Route: 064
     Dates: start: 20080917
  5. ZOLOFT [Suspect]
     Dosage: 150 MG, 1X/DAY AT BED TIME
     Route: 064
     Dates: start: 20081022
  6. PRENATAL VITAMINS [Concomitant]
     Dosage: UNK
     Route: 064
  7. PROZAC [Concomitant]
     Dosage: UNK
     Route: 064
  8. LEXAPRO [Concomitant]
     Dosage: UNK
     Route: 064
  9. SEROQUEL [Concomitant]
     Dosage: UNK
     Route: 064
  10. GEODON [Concomitant]
     Dosage: UNK
     Route: 064

REACTIONS (2)
  - Maternal exposure during pregnancy [Unknown]
  - Talipes [Unknown]
